FAERS Safety Report 12825612 (Version 1)
Quarter: 2016Q4

REPORT INFORMATION
  Report Type: Spontaneous
  Country: US (occurrence: US)
  Receive Date: 20161007
  Receipt Date: 20161007
  Transmission Date: 20170207
  Serious: Yes (Other)
  Sender: FDA-Public Use
  Company Number: None

PATIENT
  Sex: Female
  Weight: 85.5 kg

DRUGS (7)
  1. CPAP [Concomitant]
     Active Substance: DEVICE
  2. OMERPRAZOLE DELAYED RELEASE CAPSULES 20MG (OMEPRAZOLE) [Concomitant]
     Active Substance: OMEPRAZOLE
  3. CYMBALTA [Suspect]
     Active Substance: DULOXETINE HYDROCHLORIDE
     Indication: DEPRESSION
     Route: 048
  4. VITAMIN D [Concomitant]
     Active Substance: CHOLECALCIFEROL
  5. BACLOFEN. [Concomitant]
     Active Substance: BACLOFEN
  6. LIQUID HEALTH MULTIVITAMIN [Concomitant]
  7. NORCO [Concomitant]
     Active Substance: ACETAMINOPHEN\HYDROCODONE BITARTRATE

REACTIONS (1)
  - Stomatitis [None]
